FAERS Safety Report 5011877-3 (Version None)
Quarter: 2006Q2

REPORT INFORMATION
  Report Type: 
  Country: None (occurrence: None)
  Receive Date: 20060524
  Receipt Date: 20060524
  Transmission Date: 20061013
  Serious: Yes (Hospitalization)
  Sender: FDA-Public Use
  Company Number: None

PATIENT
  Age: 70 Year
  Sex: Female
  Weight: 74.3 kg

DRUGS (2)
  1. DOCETAXEL - SANOFI-AVENTIS [Suspect]
     Indication: NON-SMALL CELL LUNG CANCER
     Dosage: 75 MG/ML
  2. CARBOPLATIN [Suspect]
     Indication: NON-SMALL CELL LUNG CANCER
     Dosage: AUC = 6

REACTIONS (3)
  - COLITIS [None]
  - MALAISE [None]
  - NEUTROPENIA [None]
